FAERS Safety Report 9363997 (Version 1)
Quarter: 2013Q2

REPORT INFORMATION
  Report Type: Report from Study
  Country: CA (occurrence: CA)
  Receive Date: 20130624
  Receipt Date: 20130624
  Transmission Date: 20140414
  Serious: Yes (Hospitalization)
  Sender: FDA-Public Use
  Company Number: CA-INCYTE CORPORATION-2013IN000853

PATIENT
  Age: 62 Year
  Sex: Male

DRUGS (3)
  1. JAKAVI [Suspect]
     Indication: MYELOFIBROSIS
     Dosage: 10 MG, BID
     Route: 048
     Dates: start: 201212
  2. JAKAVI [Suspect]
     Dosage: FOR 15 DAYS 15 MG, BID
     Route: 048
     Dates: end: 20130502
  3. CRESTOR [Concomitant]

REACTIONS (4)
  - Splenic haematoma [Recovered/Resolved]
  - Haemoglobin decreased [Recovered/Resolved]
  - Platelet count decreased [Unknown]
  - Night sweats [Not Recovered/Not Resolved]
